FAERS Safety Report 9263041 (Version 5)
Quarter: 2013Q4

REPORT INFORMATION
  Report Type: Report from Study
  Country: CA (occurrence: CA)
  Receive Date: 20130430
  Receipt Date: 20131023
  Transmission Date: 20140711
  Serious: Yes (Other)
  Sender: FDA-Public Use
  Company Number: CA-ROCHE-1209543

PATIENT
  Age: 57 Year
  Sex: Female
  Weight: 50.2 kg

DRUGS (17)
  1. RITUXAN [Suspect]
     Indication: HEPATITIS C
     Route: 042
     Dates: start: 20130321
  2. RITUXAN [Suspect]
     Indication: VASCULITIS
     Route: 042
     Dates: start: 20130424
  3. RITUXAN [Suspect]
     Indication: OFF LABEL USE
     Route: 042
     Dates: start: 20130502
  4. RITUXAN [Suspect]
     Indication: PURPURA
  5. RITUXAN [Suspect]
     Indication: MONONEUROPATHY MULTIPLEX
  6. PREDNISONE [Suspect]
     Indication: PRODUCT USED FOR UNKNOWN INDICATION
     Route: 065
  7. TORADOL [Suspect]
     Indication: PRODUCT USED FOR UNKNOWN INDICATION
     Route: 065
  8. DIPHENHYDRAMINE HCL [Concomitant]
     Indication: PREMEDICATION
     Route: 048
     Dates: start: 20130321
  9. ACETAMINOPHEN [Concomitant]
     Indication: PREMEDICATION
     Route: 048
     Dates: start: 20130321
  10. METHYLPREDNISOLONE [Concomitant]
     Indication: PREMEDICATION
     Route: 042
     Dates: start: 20130321
  11. ENALAPRIL [Concomitant]
  12. AMLODIPINE [Concomitant]
  13. HYDROCHLOROTHIAZIDE [Concomitant]
  14. HYDROMORPH CONTIN [Concomitant]
  15. HYDROMORPHONE [Concomitant]
  16. MILK THISTLE [Concomitant]
  17. VITAMIN B COMPLEX [Concomitant]

REACTIONS (16)
  - Neuropathy peripheral [Not Recovered/Not Resolved]
  - Oropharyngeal pain [Recovered/Resolved]
  - Respiratory tract congestion [Not Recovered/Not Resolved]
  - Productive cough [Not Recovered/Not Resolved]
  - Night sweats [Unknown]
  - Feeling of body temperature change [Not Recovered/Not Resolved]
  - Muscle atrophy [Not Recovered/Not Resolved]
  - Blister [Recovered/Resolved]
  - Skin discolouration [Not Recovered/Not Resolved]
  - Nodule [Unknown]
  - Cough [Recovered/Resolved]
  - Mobility decreased [Not Recovered/Not Resolved]
  - Erythema [Not Recovered/Not Resolved]
  - Joint stiffness [Not Recovered/Not Resolved]
  - Disease progression [Not Recovered/Not Resolved]
  - Hypoaesthesia [Not Recovered/Not Resolved]
